FAERS Safety Report 19104973 (Version 4)
Quarter: 2022Q1

REPORT INFORMATION
  Report Type: Report from Study
  Country: US (occurrence: US)
  Receive Date: 20210407
  Receipt Date: 20220215
  Transmission Date: 20220423
  Serious: No
  Sender: FDA-Public Use
  Company Number: NVSC2021US075561

PATIENT
  Age: 84 Year
  Sex: Male

DRUGS (1)
  1. ENTRESTO [Suspect]
     Active Substance: SACUBITRIL\VALSARTAN
     Indication: Product used for unknown indication
     Dosage: 200 MG, BID
     Route: 048
     Dates: start: 20210209

REACTIONS (10)
  - Dyspnoea [Unknown]
  - Posture abnormal [Unknown]
  - Flushing [Unknown]
  - Dysmorphism [Unknown]
  - Depression [Unknown]
  - Hypersomnia [Unknown]
  - Lethargy [Unknown]
  - Fatigue [Recovered/Resolved]
  - Blood pressure decreased [Unknown]
  - Ejection fraction decreased [Unknown]

NARRATIVE: CASE EVENT DATE: 20210331
